FAERS Safety Report 9888347 (Version 1)
Quarter: 2014Q1

REPORT INFORMATION
  Report Type: Spontaneous
  Country: US (occurrence: US)
  Receive Date: 20140211
  Receipt Date: 20140211
  Transmission Date: 20141002
  Serious: No
  Sender: FDA-Public Use
  Company Number: US-B.I. PHARMACEUTICALS,INC./RIDGEFIELD-2014-BI-05204BP

PATIENT
  Age: 74 Year
  Sex: Female
  Weight: 51 kg

DRUGS (11)
  1. COMBIVENT [Suspect]
     Indication: CHRONIC OBSTRUCTIVE PULMONARY DISEASE
     Dosage: STRENGTH: 20 MCG / 100 MCG; DAILY DOSE: 80 MCG/ 400 MCG
     Route: 055
     Dates: start: 201306
  2. LORATADINE [Concomitant]
     Indication: HYPERSENSITIVITY
     Route: 048
  3. LISINOPRIL [Concomitant]
     Indication: HYPERTENSION
     Route: 048
  4. LASIX [Concomitant]
     Indication: FLUID RETENTION
     Route: 048
  5. XANAX [Concomitant]
     Route: 048
  6. ZOCOR [Concomitant]
     Route: 048
  7. PROAIR [Concomitant]
     Indication: CHRONIC OBSTRUCTIVE PULMONARY DISEASE
     Route: 055
  8. PROAIR [Concomitant]
     Indication: ASTHMA
  9. ZANTAC [Concomitant]
     Indication: DYSPEPSIA
  10. POTASSIUM CHLORIDE [Concomitant]
     Route: 048
  11. COREG [Concomitant]
     Route: 048

REACTIONS (3)
  - Confusional state [Not Recovered/Not Resolved]
  - Emphysema [Not Recovered/Not Resolved]
  - Drug ineffective [Not Recovered/Not Resolved]
